FAERS Safety Report 18362140 (Version 1)
Quarter: 2020Q4

REPORT INFORMATION
  Report Type: Report from Study
  Country: None (occurrence: US)
  Receive Date: 20201009
  Receipt Date: 20201009
  Transmission Date: 20210114
  Serious: Yes (Other)
  Sender: FDA-Public Use
  Company Number: US-ABBVIE-20K-163-3598713-00

PATIENT
  Sex: Male

DRUGS (1)
  1. HUMIRA [Suspect]
     Active Substance: ADALIMUMAB
     Indication: COLITIS ULCERATIVE
     Dosage: 4 SYRINGE ON DAY 1
     Route: 058
     Dates: start: 20200920, end: 20200920

REACTIONS (11)
  - Abdominal pain [Unknown]
  - Pain [Unknown]
  - Anxiety [Unknown]
  - Frequent bowel movements [Unknown]
  - Proctalgia [Unknown]
  - Chills [Unknown]
  - Feeling hot [Unknown]
  - Diarrhoea [Unknown]
  - Weight decreased [Unknown]
  - Asthenia [Unknown]
  - Sleep disorder [Unknown]

NARRATIVE: CASE EVENT DATE: 2020
